FAERS Safety Report 5501648-3 (Version None)
Quarter: 2007Q4

REPORT INFORMATION
  Report Type: 
  Country: None (occurrence: None)
  Receive Date: 20071026
  Receipt Date: 20071026
  Transmission Date: 20080405
  Serious: Yes (Disabling)
  Sender: FDA-Public Use
  Company Number: None

PATIENT
  Sex: Female
  Weight: 81.6475 kg

DRUGS (19)
  1. CUBICIN [Suspect]
     Indication: CENTRAL NERVOUS SYSTEM INFECTION
     Dosage: 420 MG ONCE DAILY IV
     Route: 042
     Dates: start: 20070727, end: 20070810
  2. CUBICIN [Suspect]
     Indication: STAPHYLOCOCCAL INFECTION
     Dosage: 420 MG ONCE DAILY IV
     Route: 042
     Dates: start: 20070727, end: 20070810
  3. COZAAR [Concomitant]
  4. CYCLOBENZAPRINE HCL [Concomitant]
  5. DURAGESIC-100 [Concomitant]
  6. HEPARIN LOCK-FLUSH [Concomitant]
  7. HYDROCHLOROTHIAZIDE [Concomitant]
  8. LOVENOX [Concomitant]
  9. MIRALAX [Concomitant]
  10. REGULAR INSULIN [Concomitant]
  11. NOVOLOG MIX 70/30 [Concomitant]
  12. NYSTOP POWDER [Concomitant]
  13. PROCRIT [Concomitant]
  14. PROPASS [Concomitant]
  15. ACETAMINOPHEN [Concomitant]
  16. BACLOFEN [Concomitant]
  17. THORAZINE [Concomitant]
  18. DILAUDID [Concomitant]
  19. DIPHENHYDRAMINE HCL [Concomitant]

REACTIONS (3)
  - BLOOD ALKALINE PHOSPHATASE INCREASED [None]
  - BLOOD CREATINE PHOSPHOKINASE INCREASED [None]
  - HEPATIC ENZYME INCREASED [None]
